FAERS Safety Report 9995410 (Version 1)
Quarter: 2014Q1

REPORT INFORMATION
  Report Type: Spontaneous
  Country: US (occurrence: US)
  Receive Date: 20140311
  Receipt Date: 20140311
  Transmission Date: 20141002
  Serious: No
  Sender: FDA-Public Use
  Company Number: US-009507513-1402USA013027

PATIENT
  Sex: Female

DRUGS (1)
  1. NASONEX [Suspect]

REACTIONS (2)
  - Epistaxis [Unknown]
  - Nasal ulcer [Unknown]
